FAERS Safety Report 8259002-X (Version None)
Quarter: 2012Q2

REPORT INFORMATION
  Report Type: 
  Country: None (occurrence: None)
  Receive Date: 20120404
  Receipt Date: 20120402
  Transmission Date: 20120825
  Serious: Yes (Other)
  Sender: FDA-Public Use
  Company Number: IT-JNJFOC-20120312944

PATIENT
  Sex: Female

DRUGS (30)
  1. DOXORUBICIN HCL [Suspect]
     Indication: BREAST CANCER
     Dosage: MEDIAN CUMULATIVE DOSE 300MG/M2
     Route: 042
  2. DOCETAXEL [Suspect]
     Route: 065
  3. FLUOROURACIL [Suspect]
     Route: 065
  4. DOXORUBICIN HCL [Suspect]
     Dosage: MEDIAN CUMULATIVE DOSE 300MG/M2
     Route: 042
  5. DOCETAXEL [Suspect]
     Route: 065
  6. DOCETAXEL [Suspect]
     Route: 065
  7. EPIRUBICIN [Suspect]
     Indication: BREAST CANCER
     Route: 065
  8. FLUOROURACIL [Suspect]
     Indication: BREAST CANCER
     Route: 065
  9. FLUOROURACIL [Suspect]
     Route: 065
  10. CYCLOPHOSPHAMIDE [Suspect]
     Route: 065
  11. DOXORUBICIN HCL [Suspect]
     Dosage: MEDIAN CUMULATIVE DOSE 300MG/M2
     Route: 042
  12. DOXORUBICIN HCL [Suspect]
     Dosage: MEDIAN CUMULATIVE DOSE 300MG/M2
     Route: 042
  13. DOCETAXEL [Suspect]
     Route: 065
  14. FLUOROURACIL [Suspect]
     Route: 065
  15. CYCLOPHOSPHAMIDE [Suspect]
     Route: 065
  16. CYCLOPHOSPHAMIDE [Suspect]
     Route: 065
  17. DOCETAXEL [Suspect]
     Indication: BREAST CANCER
     Route: 065
  18. FLUOROURACIL [Suspect]
     Route: 065
  19. CYCLOPHOSPHAMIDE [Suspect]
     Indication: BREAST CANCER
     Route: 065
  20. EPIRUBICIN [Suspect]
     Route: 065
  21. EPIRUBICIN [Suspect]
     Route: 065
  22. EPIRUBICIN [Suspect]
     Route: 065
  23. FLUOROURACIL [Suspect]
     Route: 065
  24. DOXORUBICIN HCL [Suspect]
     Dosage: MEDIAN CUMULATIVE DOSE 300MG/M2
     Route: 042
  25. EPIRUBICIN [Suspect]
     Route: 065
  26. EPIRUBICIN [Suspect]
     Route: 065
  27. CYCLOPHOSPHAMIDE [Suspect]
     Route: 065
  28. DOXORUBICIN HCL [Suspect]
     Dosage: MEDIAN CUMULATIVE DOSE 300MG/M2
     Route: 042
  29. DOCETAXEL [Suspect]
     Route: 065
  30. CYCLOPHOSPHAMIDE [Suspect]
     Route: 065

REACTIONS (4)
  - CARDIAC FAILURE [None]
  - EJECTION FRACTION DECREASED [None]
  - ARRHYTHMIA SUPRAVENTRICULAR [None]
  - DYSPNOEA [None]
